FAERS Safety Report 11862873 (Version 1)
Quarter: 2015Q4

REPORT INFORMATION
  Report Type: Other
  Country: GB (occurrence: GB)
  Receive Date: 20151223
  Receipt Date: 20151223
  Transmission Date: 20160305
  Serious: No
  Sender: FDA-Public Use
  Company Number: GB-LUPIN PHARMACEUTICALS INC.-2015-03543

PATIENT
  Age: 54 Year
  Sex: Male

DRUGS (2)
  1. IBANDRONIC ACID [Concomitant]
     Active Substance: IBANDRONIC ACID
     Indication: PRODUCT USED FOR UNKNOWN INDICATION
     Route: 065
  2. CIPROFLOXACIN. [Suspect]
     Active Substance: CIPROFLOXACIN
     Indication: BACTERIAL DISEASE CARRIER
     Route: 048

REACTIONS (2)
  - Foot fracture [Recovering/Resolving]
  - Tendonitis [Recovering/Resolving]
